FAERS Safety Report 11842972 (Version 8)
Quarter: 2018Q1

REPORT INFORMATION
  Report Type: Spontaneous
  Country: US (occurrence: US)
  Receive Date: 20151216
  Receipt Date: 20180221
  Transmission Date: 20180508
  Serious: No
  Sender: FDA-Public Use
  Company Number: US-PFIZER INC-2015436420

PATIENT
  Age: 63 Year
  Sex: Female
  Weight: 61.23 kg

DRUGS (10)
  1. LYRICA [Suspect]
     Active Substance: PREGABALIN
     Indication: SPINAL CORD INJURY
     Dosage: 75 MG, 3X/DAY
     Route: 048
     Dates: start: 20151016
  2. LORAZEPAM. [Concomitant]
     Active Substance: LORAZEPAM
     Dosage: 2 MG, 3X/DAY
     Route: 048
  3. ACETAMINOPHEN-OXYCODONE HYDROCHLORIDE [Concomitant]
     Indication: PAIN
     Dosage: (ACETAMINOPHEN-325 MG, OXYCODONE HYDROCHLORIDE: 7.5 MG) 1DF 4X/DAY AS NEEDED
     Route: 048
     Dates: start: 20151016
  4. LYRICA [Suspect]
     Active Substance: PREGABALIN
     Indication: PAIN IN EXTREMITY
  5. VOLTAREN [Concomitant]
     Active Substance: DICLOFENAC SODIUM
     Indication: PAIN
     Dosage: 1 % GEL, APPLY 2 GRAMS 4 TIMES A DAY PRN
  6. ZITHROMAX [Concomitant]
     Active Substance: AZITHROMYCIN DIHYDRATE
     Dosage: 1200 MG, WEEKLY
     Route: 048
  7. MAXAIT [Concomitant]
     Dosage: 10 MG, 1X/DAY
     Route: 048
  8. OXYCODONE [Suspect]
     Active Substance: OXYCODONE
     Indication: PAIN
     Dosage: 7.5-325 MG AFTER EVERY SIX HOURS (THREE -FOUR TIMES A DAY)
  9. DIOVAN HCT [Concomitant]
     Active Substance: HYDROCHLOROTHIAZIDE\VALSARTAN
     Indication: BLOOD PRESSURE ABNORMAL
     Dosage: 1 DF, 1X/DAY (HYDROCHLOROTHIAZIDE-160 MG, VALSARTAN-12.5 MG)
     Route: 048
  10. TYLENOL [Concomitant]
     Active Substance: ACETAMINOPHEN
     Dosage: 650 MG, EVERY 4 HOURS PRN
     Route: 048

REACTIONS (17)
  - Feeling abnormal [Unknown]
  - Feeling cold [Unknown]
  - Back pain [Unknown]
  - Arthralgia [Unknown]
  - Gait disturbance [Recovering/Resolving]
  - Fall [Unknown]
  - Anxiety [Unknown]
  - Neuropathy peripheral [Unknown]
  - Insomnia [Not Recovered/Not Resolved]
  - Pain [Recovering/Resolving]
  - Disturbance in attention [Unknown]
  - Pain in extremity [Unknown]
  - Impaired driving ability [Unknown]
  - Burning sensation [Recovering/Resolving]
  - Intentional product use issue [Unknown]
  - Discomfort [Unknown]
  - Condition aggravated [Recovering/Resolving]

NARRATIVE: CASE EVENT DATE: 2015
